FAERS Safety Report 8533301-6 (Version None)
Quarter: 2012Q3

REPORT INFORMATION
  Report Type: 
  Country: None (occurrence: None)
  Receive Date: 20120724
  Receipt Date: 20120718
  Transmission Date: 20120928
  Serious: No
  Sender: FDA-Public Use
  Company Number: US-BAYER-2012-068579

PATIENT
  Sex: Female

DRUGS (1)
  1. MIRENA [Suspect]
     Indication: CONTRACEPTION
     Dosage: 20 MCG/24HR, CONT
     Route: 015
     Dates: start: 20101101

REACTIONS (12)
  - HEADACHE [None]
  - MEDICAL DEVICE COMPLICATION [None]
  - FATIGUE [None]
  - PAIN [None]
  - VAGINAL DISCHARGE [None]
  - DEVICE COMPONENT ISSUE [None]
  - INSOMNIA [None]
  - POLLAKIURIA [None]
  - WEIGHT INCREASED [None]
  - ABDOMINAL PAIN LOWER [None]
  - NAUSEA [None]
  - HYPERPHAGIA [None]
